FAERS Safety Report 24452625 (Version 5)
Quarter: 2025Q1

REPORT INFORMATION
  Report Type: Spontaneous
  Country: US (occurrence: US)
  Receive Date: 20241017
  Receipt Date: 20250310
  Transmission Date: 20250409
  Serious: No
  Sender: SANOFI AVENTIS
  Company Number: US-SA-2024SA294941

PATIENT
  Age: 67 Year
  Sex: Male

DRUGS (1)
  1. DUPIXENT [Suspect]
     Active Substance: DUPILUMAB
     Indication: Asthma
     Dosage: 300 MG, QOW
     Route: 058

REACTIONS (7)
  - Wheezing [Not Recovered/Not Resolved]
  - Sinus disorder [Unknown]
  - Dyspnoea [Unknown]
  - Fatigue [Unknown]
  - Sinusitis [Unknown]
  - Dry eye [Unknown]
  - Inappropriate schedule of product administration [Unknown]
